FAERS Safety Report 8187843-6 (Version None)
Quarter: 2012Q1

REPORT INFORMATION
  Report Type: 
  Country: None (occurrence: None)
  Receive Date: 20120221
  Receipt Date: 20110923
  Transmission Date: 20120608
  Serious: Yes (Other)
  Sender: FDA-Public Use
  Company Number: PHEH2011US02682

PATIENT
  Age: 63 Year
  Sex: Female
  Weight: 55.3 kg

DRUGS (1)
  1. TOBI [Suspect]
     Indication: BRONCHIECTASIS
     Dosage: 300 MG, TWICE A DAY 28 DAYS THEN 28 DAYS OFF, INHALATION
     Route: 055
     Dates: start: 20110712

REACTIONS (3)
  - BRONCHOSPASM [None]
  - DYSPNOEA [None]
  - FATIGUE [None]
